FAERS Safety Report 7422534-8 (Version None)
Quarter: 2011Q2

REPORT INFORMATION
  Report Type: 
  Country: None (occurrence: None)
  Receive Date: 20110419
  Receipt Date: 20110411
  Transmission Date: 20111010
  Serious: No
  Sender: FDA-Public Use
  Company Number: US-BIOGENIDEC-2011BI013770

PATIENT
  Sex: Female

DRUGS (1)
  1. AVONEX [Suspect]
     Indication: MULTIPLE SCLEROSIS
     Route: 030
     Dates: start: 20090701, end: 20110301

REACTIONS (5)
  - ORAL HERPES [None]
  - ANXIETY [None]
  - APHASIA [None]
  - MEMORY IMPAIRMENT [None]
  - DRUG INEFFECTIVE [None]
